FAERS Safety Report 12210343 (Version 4)
Quarter: 2016Q3

REPORT INFORMATION
  Report Type: Report from Study
  Country: ZA (occurrence: ZA)
  Receive Date: 20160325
  Receipt Date: 20160729
  Transmission Date: 20161109
  Serious: Yes (Death, Life-Threatening, Hospitalization, Other)
  Sender: FDA-Public Use
  Company Number: ZA-ROCHE-1730260

PATIENT
  Age: 39 Year
  Sex: Female
  Weight: 60 kg

DRUGS (39)
  1. VINCRISTINE [Suspect]
     Active Substance: VINCRISTINE
     Route: 042
     Dates: start: 20151201, end: 20151201
  2. SOLU-CORTEF [Suspect]
     Active Substance: HYDROCORTISONE SODIUM SUCCINATE
     Route: 042
     Dates: start: 20151201
  3. RIFINAH [Concomitant]
     Active Substance: ISONIAZID\RIFAMPIN
     Dosage: 2 TABLETS DAILY
     Route: 048
     Dates: start: 20151020
  4. LOPINAVIR/RITONAVIR [Concomitant]
     Active Substance: LOPINAVIR\RITONAVIR
     Dosage: 4 TABLETS TWICE A DAY
     Route: 048
     Dates: start: 20151020
  5. PREDNISONE. [Suspect]
     Active Substance: PREDNISONE
     Dosage: 60MG ORALLY ONCE DAILY FOR 7 DAYS
     Route: 048
     Dates: start: 20151201
  6. PHENERGAN [Suspect]
     Active Substance: PROMETHAZINE HYDROCHLORIDE
     Indication: DIFFUSE LARGE B-CELL LYMPHOMA
     Dosage: 25MG 3 TIMES A DAY FOR 24 HOURS
     Route: 048
     Dates: start: 20151020
  7. RITUXIMAB [Suspect]
     Active Substance: RITUXIMAB
     Indication: DIFFUSE LARGE B-CELL LYMPHOMA
     Route: 042
     Dates: start: 20151020, end: 20151020
  8. CYCLOPHOSPHAMIDE. [Suspect]
     Active Substance: CYCLOPHOSPHAMIDE
     Route: 042
     Dates: start: 20151201, end: 20151201
  9. PANADO [Suspect]
     Active Substance: ACETAMINOPHEN
     Dosage: 2 TABLETS 6 HOURLY ORALLY FOR 24 HOURS
     Route: 048
     Dates: start: 20151201
  10. 3TC [Concomitant]
     Active Substance: LAMIVUDINE
     Route: 048
     Dates: start: 20151020
  11. ALDARA [Concomitant]
     Active Substance: IMIQUIMOD
     Dosage: APPLY TO WARTS THREE TIMES A WEEK
     Route: 065
     Dates: start: 20151201
  12. ZOFRAN [Suspect]
     Active Substance: ONDANSETRON HYDROCHLORIDE
     Indication: DIFFUSE LARGE B-CELL LYMPHOMA
     Route: 042
     Dates: start: 20151020
  13. ZOFRAN [Suspect]
     Active Substance: ONDANSETRON HYDROCHLORIDE
     Route: 042
     Dates: start: 20151201
  14. PREDNISONE. [Suspect]
     Active Substance: PREDNISONE
     Indication: DIFFUSE LARGE B-CELL LYMPHOMA
     Route: 048
     Dates: start: 20151020, end: 20151026
  15. PHENERGAN [Suspect]
     Active Substance: PROMETHAZINE HYDROCHLORIDE
     Dosage: 25MG 3 TIMES DAILY FOR 24 HOURS
     Route: 048
     Dates: start: 20151201
  16. ALLOPURINOL. [Concomitant]
     Active Substance: ALLOPURINOL
     Route: 048
     Dates: start: 20151020
  17. ALLOPURINOL. [Concomitant]
     Active Substance: ALLOPURINOL
     Route: 065
     Dates: start: 20151201
  18. PYRIDOXINE [Concomitant]
     Active Substance: PYRIDOXINE
     Route: 048
     Dates: start: 20151020
  19. FERROUS SULFATE. [Concomitant]
     Active Substance: FERROUS SULFATE
     Route: 048
     Dates: start: 20151020
  20. FOLATE [Concomitant]
     Active Substance: FOLATE SODIUM
     Route: 048
     Dates: start: 20151020
  21. LACTULOSE. [Concomitant]
     Active Substance: LACTULOSE
     Dosage: 10ML 3 TIMES DAILY WHEN NECESSARY
     Route: 048
     Dates: start: 20151201
  22. ADRIAMYCIN [Suspect]
     Active Substance: DOXORUBICIN HYDROCHLORIDE
     Route: 042
     Dates: start: 20151201, end: 20151201
  23. LANZOR [Concomitant]
     Active Substance: LANSOPRAZOLE
     Route: 048
     Dates: start: 20151020
  24. FERROUS SULFATE. [Concomitant]
     Active Substance: FERROUS SULFATE
     Route: 048
     Dates: start: 20151201
  25. ANUSOL CREAM (BISMUTH OXIDE/PERUVIAN BALSAM/ZINC OXIDE) [Concomitant]
     Dosage: APPLY WHEN NECESSARY TO HAEMORRHOIDS
     Route: 065
     Dates: start: 20151201
  26. RITUXIMAB [Suspect]
     Active Substance: RITUXIMAB
     Route: 042
     Dates: start: 20151201, end: 20151201
  27. ADRIAMYCIN [Suspect]
     Active Substance: DOXORUBICIN HYDROCHLORIDE
     Indication: DIFFUSE LARGE B-CELL LYMPHOMA
     Route: 042
     Dates: start: 20151020, end: 20151020
  28. VINCRISTINE [Suspect]
     Active Substance: VINCRISTINE
     Indication: DIFFUSE LARGE B-CELL LYMPHOMA
     Route: 042
     Dates: start: 20151020, end: 20151020
  29. ETOPOSIDE. [Suspect]
     Active Substance: ETOPOSIDE
     Route: 042
     Dates: start: 20151201, end: 20151201
  30. ALLOPURINOL. [Concomitant]
     Active Substance: ALLOPURINOL
     Route: 048
     Dates: start: 20151211
  31. CYCLOPHOSPHAMIDE. [Suspect]
     Active Substance: CYCLOPHOSPHAMIDE
     Indication: DIFFUSE LARGE B-CELL LYMPHOMA
     Route: 042
     Dates: start: 20151020, end: 20151020
  32. ZOFRAN [Suspect]
     Active Substance: ONDANSETRON HYDROCHLORIDE
     Dosage: 4MG TWICE A DAY FOR 3 DAYS
     Route: 048
  33. SOLU-CORTEF [Suspect]
     Active Substance: HYDROCORTISONE SODIUM SUCCINATE
     Indication: DIFFUSE LARGE B-CELL LYMPHOMA
     Route: 042
     Dates: start: 20151020, end: 20151020
  34. PANADO [Suspect]
     Active Substance: ACETAMINOPHEN
     Indication: DIFFUSE LARGE B-CELL LYMPHOMA
     Dosage: 2 TABLETS 6 HOURLY X 24 HOURS
     Route: 048
     Dates: start: 20151020
  35. FOLATE [Concomitant]
     Active Substance: FOLATE SODIUM
     Route: 048
     Dates: start: 20151201
  36. TRAMAL [Concomitant]
     Active Substance: TRAMADOL
     Route: 065
     Dates: start: 20151201, end: 20151214
  37. ETOPOSIDE. [Suspect]
     Active Substance: ETOPOSIDE
     Indication: DIFFUSE LARGE B-CELL LYMPHOMA
     Route: 042
     Dates: start: 20151020, end: 20151020
  38. ZOFRAN [Suspect]
     Active Substance: ONDANSETRON HYDROCHLORIDE
     Dosage: 4MG ORALLY TWICE A DAY FOR 3 DAYS
     Route: 048
     Dates: start: 20151201
  39. AZT [Concomitant]
     Active Substance: ZIDOVUDINE
     Route: 048
     Dates: start: 20151020

REACTIONS (24)
  - Pleural effusion [Fatal]
  - Renal impairment [Fatal]
  - Night sweats [Fatal]
  - Neutropenia [Recovered/Resolved]
  - Pneumonia [Recovered/Resolved]
  - Clostridium difficile colitis [Recovered/Resolved]
  - Sinus tachycardia [Fatal]
  - Hyperkalaemia [Fatal]
  - Electrolyte imbalance [Recovered/Resolved]
  - Blood sodium decreased [Recovered/Resolved]
  - Leukopenia [Not Recovered/Not Resolved]
  - Respiratory distress [Fatal]
  - Gastroenteritis [Recovered/Resolved]
  - Anogenital warts [Recovered/Resolved]
  - Haemorrhoids [Recovered/Resolved]
  - Lymphopenia [Not Recovered/Not Resolved]
  - Anaemia [Fatal]
  - Neutrophilia [Fatal]
  - Hypocalcaemia [Fatal]
  - Pyrexia [Recovered/Resolved]
  - Pleural effusion [Recovered/Resolved]
  - Sepsis [Recovered/Resolved]
  - Cardiopulmonary failure [Fatal]
  - Hyponatraemia [Fatal]

NARRATIVE: CASE EVENT DATE: 20151030
